FAERS Safety Report 10289408 (Version 1)
Quarter: 2014Q3

REPORT INFORMATION
  Report Type: Spontaneous
  Country: DE (occurrence: DE)
  Receive Date: 20140710
  Receipt Date: 20140710
  Transmission Date: 20150326
  Serious: Yes (Other)
  Sender: FDA-Public Use
  Company Number: DE-RANBAXY-2014RR-83163

PATIENT
  Age: 46 Year
  Sex: Female
  Weight: 76 kg

DRUGS (2)
  1. CIPROFLOXACIN. [Suspect]
     Active Substance: CIPROFLOXACIN
     Indication: WHITE BLOOD CELL COUNT INCREASED
     Dosage: 500 MG, UNK
     Route: 048
     Dates: start: 20130314
  2. CLONT (METRONIDAZOLE) [Suspect]
     Active Substance: METRONIDAZOLE
     Indication: WHITE BLOOD CELL COUNT INCREASED
     Dosage: 500 MG, UNK
     Route: 048

REACTIONS (1)
  - Toxicity to various agents [Unknown]

NARRATIVE: CASE EVENT DATE: 201303
